FAERS Safety Report 4342328-X (Version None)
Quarter: 2004Q2

REPORT INFORMATION
  Report Type: 
  Country: None (occurrence: None)
  Receive Date: 20040420
  Receipt Date: 20040420
  Transmission Date: 20050107
  Serious: Yes (Hospitalization)
  Sender: FDA-Public Use
  Company Number: None

PATIENT
  Age: 15 Year
  Sex: Female
  Weight: 46.2669 kg

DRUGS (3)
  1. GENTAMICIN [Suspect]
     Indication: CYSTIC FIBROSIS
     Dosage: 170 MG IV Q 8H
     Route: 042
     Dates: start: 20030217, end: 20030304
  2. VANCOMYCIN [Suspect]
     Indication: CYSTIC FIBROSIS
     Dosage: 670 MG IV Q8H
     Route: 042
     Dates: start: 20030217, end: 20030310
  3. CEFEPIME [Concomitant]

REACTIONS (3)
  - DRUG LEVEL ABOVE THERAPEUTIC [None]
  - NEPHRITIS INTERSTITIAL [None]
  - RENAL FAILURE [None]
